FAERS Safety Report 7037524-7 (Version None)
Quarter: 2010Q4

REPORT INFORMATION
  Report Type: 
  Country: None (occurrence: None)
  Receive Date: 20101011
  Receipt Date: 20100930
  Transmission Date: 20110411
  Serious: Yes (Hospitalization)
  Sender: FDA-Public Use
  Company Number: B0678533A

PATIENT
  Age: 52 Year
  Sex: Male

DRUGS (2)
  1. AVANDAMET [Suspect]
     Indication: DIABETES MELLITUS
     Route: 065
     Dates: start: 20091001, end: 20091101
  2. UNSPECIFIED MEDICATION [Suspect]
     Indication: PRODUCT USED FOR UNKNOWN INDICATION
     Route: 065

REACTIONS (4)
  - MONOPLEGIA [None]
  - PARALYSIS [None]
  - PRODUCT QUALITY ISSUE [None]
  - SYNCOPE [None]
